FAERS Safety Report 8585501-7 (Version None)
Quarter: 2012Q3

REPORT INFORMATION
  Report Type: 
  Country: None (occurrence: None)
  Receive Date: 20120810
  Receipt Date: 20120731
  Transmission Date: 20120928
  Serious: Yes (Hospitalization)
  Sender: FDA-Public Use
  Company Number: US-BAYER-2012-045923

PATIENT
  Age: 36 Year
  Sex: Female

DRUGS (17)
  1. YASMIN [Suspect]
  2. YAZ [Suspect]
  3. LEVAQUIN [Concomitant]
  4. DILAUDID [Concomitant]
     Dosage: 1 MG, UNK
     Route: 042
     Dates: start: 20120104
  5. STOOL SOFTENER [Concomitant]
  6. COLACE [Concomitant]
     Dosage: 100 MG, BID
     Route: 048
     Dates: start: 20111231
  7. FERROUS SULFATE TAB [Concomitant]
     Dosage: UNK
     Route: 048
     Dates: start: 20111231
  8. SENNA-MINT WAF [Concomitant]
     Dosage: UNK
     Route: 048
     Dates: start: 20111231
  9. MILK OF MAGNESIA TAB [Concomitant]
     Dosage: UNK
     Route: 048
     Dates: start: 20111231
  10. ZOFRAN [Concomitant]
     Dosage: 4 MG, UNK
     Route: 042
     Dates: start: 20120104
  11. ANTIBIOTICS [Concomitant]
     Indication: PELVIC ABSCESS
  12. ROXICET [Concomitant]
     Dosage: UNK
     Route: 048
     Dates: start: 20111231
  13. NAPROXEN [Concomitant]
     Dosage: UNK
     Route: 048
     Dates: start: 20111231
  14. IRON [Concomitant]
     Indication: ANAEMIA
  15. FLAGYL [Concomitant]
  16. MOTRIN [Concomitant]
     Dosage: UNK
     Route: 048
     Dates: start: 20120104
  17. IBUPROFEN [Concomitant]
     Dosage: 800 MG, PRN

REACTIONS (8)
  - DEEP VEIN THROMBOSIS [None]
  - INJURY [None]
  - ANXIETY [None]
  - QUALITY OF LIFE DECREASED [None]
  - FEAR [None]
  - EMOTIONAL DISTRESS [None]
  - ANHEDONIA [None]
  - PAIN [None]
